FAERS Safety Report 8214946-X (Version None)
Quarter: 2012Q1

REPORT INFORMATION
  Report Type: 
  Country: None (occurrence: None)
  Receive Date: 20120316
  Receipt Date: 20120310
  Transmission Date: 20120608
  Serious: Yes (Other)
  Sender: FDA-Public Use
  Company Number: US-PFIZER INC-2012063611

PATIENT
  Sex: Male
  Weight: 77.098 kg

DRUGS (3)
  1. IBUPROFEN (ADVIL) [Suspect]
     Indication: PAIN
     Dosage: 200 MG, UNK
     Route: 048
     Dates: start: 20120309, end: 20120309
  2. IBUPROFEN (ADVIL) [Suspect]
     Indication: HEADACHE
     Dosage: TWO 200MG, AS NEEDED
     Dates: start: 20120309, end: 20120310
  3. IBUPROFEN (ADVIL) [Suspect]
     Indication: ABDOMINAL PAIN

REACTIONS (8)
  - DYSPNOEA [None]
  - HEADACHE [None]
  - SPEECH DISORDER [None]
  - MALAISE [None]
  - ABDOMINAL PAIN UPPER [None]
  - GASTROINTESTINAL HAEMORRHAGE [None]
  - PAIN [None]
  - NAUSEA [None]
